FAERS Safety Report 7792797-8 (Version None)
Quarter: 2011Q4

REPORT INFORMATION
  Report Type: 
  Country: None (occurrence: None)
  Receive Date: 20111003
  Receipt Date: 20110928
  Transmission Date: 20120403
  Serious: Yes (Death, Hospitalization)
  Sender: FDA-Public Use
  Company Number: US-GLAXOSMITHKLINE-A0853787A

PATIENT
  Age: 83 Year
  Sex: Female
  Weight: 53.6 kg

DRUGS (5)
  1. ARICEPT [Concomitant]
  2. PREDNISONE [Concomitant]
  3. NAMENDA [Concomitant]
  4. AVANDIA [Suspect]
     Indication: TYPE 2 DIABETES MELLITUS
     Dosage: 4MG PER DAY
     Route: 048
     Dates: start: 20050510, end: 20070919
  5. LEVOTHYROXINE [Concomitant]

REACTIONS (4)
  - CARDIAC FAILURE [None]
  - MYOCARDIAL INFARCTION [None]
  - CORONARY ARTERY DISEASE [None]
  - CARDIAC FAILURE CONGESTIVE [None]
